FAERS Safety Report 24970166 (Version 1)
Quarter: 2025Q1

REPORT INFORMATION
  Report Type: Spontaneous
  Country: US (occurrence: None)
  Receive Date: 20250213
  Receipt Date: 20250213
  Transmission Date: 20250409
  Serious: Yes (Life-Threatening, Hospitalization)
  Sender: FDA-CTU
  Company Number: None

PATIENT
  Age: 64 Year
  Sex: Male
  Weight: 40.6 kg

DRUGS (1)
  1. TECARTUS [Suspect]
     Active Substance: BREXUCABTAGENE AUTOLEUCEL
     Indication: Mantle cell lymphoma
     Dates: start: 20241216

REACTIONS (10)
  - Klebsiella urinary tract infection [None]
  - Unresponsive to stimuli [None]
  - Cerebrovascular accident [None]
  - Hypotension [None]
  - Neurotoxicity [None]
  - Cytokine release syndrome [None]
  - Hyperferritinaemia [None]
  - Liver function test abnormal [None]
  - Lactic acidosis [None]
  - Mental status changes [None]

NARRATIVE: CASE EVENT DATE: 20241216
